FAERS Safety Report 13422935 (Version 1)
Quarter: 2017Q2

REPORT INFORMATION
  Report Type: Spontaneous
  Country: US (occurrence: US)
  Receive Date: 20170410
  Receipt Date: 20170410
  Transmission Date: 20170830
  Serious: No
  Sender: FDA-Public Use
  Company Number: None

PATIENT

DRUGS (2)
  1. METHOTREXATE TABLETS [Suspect]
     Active Substance: METHOTREXATE
     Route: 048
  2. METHOTREXATE TABLETS [Suspect]
     Active Substance: METHOTREXATE
     Route: 048

REACTIONS (7)
  - Mouth ulceration [None]
  - Pyrexia [None]
  - Incorrect dose administered [None]
  - Oropharyngeal pain [None]
  - Product label confusion [None]
  - Rash [None]
  - Chills [None]
